FAERS Safety Report 9128904 (Version 1)
Quarter: 2013Q1

REPORT INFORMATION
  Report Type: Spontaneous
  Country: US (occurrence: US)
  Receive Date: 20130228
  Receipt Date: 20130228
  Transmission Date: 20140127
  Serious: No
  Sender: FDA-Public Use
  Company Number: US-ABBOTT-13P-163-1041599-00

PATIENT
  Sex: Male
  Weight: 81.72 kg

DRUGS (7)
  1. ANDROGEL [Suspect]
     Indication: BLOOD TESTOSTERONE DECREASED
     Dosage: 2 PUMPS
     Route: 061
     Dates: start: 201210, end: 201211
  2. ANDROGEL [Suspect]
     Dosage: 1 PUMP
     Route: 061
     Dates: start: 201211, end: 201212
  3. ANDROGEL [Suspect]
     Dosage: 1 PUMP
     Route: 061
     Dates: start: 201212, end: 201212
  4. ANDROGEL [Suspect]
     Dosage: 1 PUMP
     Route: 061
     Dates: start: 201201
  5. LORATADINE [Concomitant]
     Indication: ALLERGIC BRONCHITIS
  6. IMMUNOGLOBULIN [Concomitant]
     Indication: PRODUCT USED FOR UNKNOWN INDICATION
  7. MUCINEX [Concomitant]
     Indication: PRODUCT USED FOR UNKNOWN INDICATION

REACTIONS (7)
  - Hypersensitivity [Not Recovered/Not Resolved]
  - Blood prolactin increased [Unknown]
  - Blood caffeine increased [Recovered/Resolved]
  - Energy increased [Recovered/Resolved]
  - Agitation [Recovered/Resolved]
  - Tachyphrenia [Recovered/Resolved]
  - Abnormal dreams [Recovered/Resolved]
